FAERS Safety Report 8288352-6 (Version None)
Quarter: 2012Q2

REPORT INFORMATION
  Report Type: 
  Country: None (occurrence: None)
  Receive Date: 20120416
  Receipt Date: 20120412
  Transmission Date: 20120825
  Serious: Yes (Life-Threatening, Hospitalization, Other)
  Sender: FDA-Public Use
  Company Number: FR-PFIZER INC-2012090813

PATIENT
  Age: 85 Year
  Sex: Male

DRUGS (9)
  1. LASIX [Suspect]
     Indication: HYPERTENSION
     Dosage: 40MG, DAILY
     Route: 048
     Dates: end: 20120229
  2. ACETAMINOPHEN [Suspect]
     Indication: PAIN
     Dosage: AS NEEDED
     Route: 048
  3. ATORVASTATIN [Suspect]
     Indication: HYPERCHOLESTEROLAEMIA
     Dosage: 10 MG, 1X/DAY
     Route: 048
     Dates: end: 20120229
  4. ASPIRIN [Suspect]
     Indication: ATRIAL FIBRILLATION
     Dosage: 75MG, DAILY
     Route: 048
     Dates: end: 20120229
  5. BISOPROLOL FUMARATE [Suspect]
     Indication: HYPERTENSION
     Dosage: 5MG, DAILY
     Route: 048
     Dates: end: 20120229
  6. RABEPRAZOLE SODIUM [Suspect]
     Dosage: 10MG, DAILY
     Route: 048
     Dates: end: 20120229
  7. REPAGLINIDE [Concomitant]
     Dosage: UNK
  8. PREVISCAN [Suspect]
     Indication: ATRIAL FIBRILLATION
     Dosage: DEPENDING ON INR VALUE
     Route: 048
     Dates: end: 20120229
  9. LANTUS [Concomitant]
     Dosage: UNK

REACTIONS (1)
  - CEREBRAL HAEMATOMA [None]
